FAERS Safety Report 7461805-6 (Version None)
Quarter: 2011Q2

REPORT INFORMATION
  Report Type: 
  Country: None (occurrence: None)
  Receive Date: 20110506
  Receipt Date: 20110426
  Transmission Date: 20111010
  Serious: Yes (Hospitalization, Other)
  Sender: FDA-Public Use
  Company Number: US-ELI_LILLY_AND_COMPANY-US201104007714

PATIENT
  Sex: Female

DRUGS (5)
  1. HUMALOG [Suspect]
     Dosage: 5 U, OTHER
     Dates: start: 19900101
  2. HUMALOG [Suspect]
     Indication: DIABETES MELLITUS
     Dosage: 5 U, EACH EVENING
     Dates: start: 19900101
  3. HUMALOG [Suspect]
     Dosage: 7 U, EACH EVENING
     Dates: start: 19900101
  4. HUMALOG [Suspect]
     Dosage: UNK UNK, PRN
     Dates: start: 19900101
  5. LANTUS [Concomitant]
     Dosage: UNK

REACTIONS (7)
  - MEMORY IMPAIRMENT [None]
  - NECROTISING FASCIITIS [None]
  - COMA [None]
  - MYOCARDIAL INFARCTION [None]
  - BLINDNESS [None]
  - CHOLECYSTITIS [None]
  - MALAISE [None]
